FAERS Safety Report 15619344 (Version 1)
Quarter: 2018Q4

REPORT INFORMATION
  Report Type: Spontaneous
  Country: IT (occurrence: IT)
  Receive Date: 20181115
  Receipt Date: 20181115
  Transmission Date: 20190205
  Serious: Yes (Hospitalization)
  Sender: FDA-Public Use
  Company Number: IT-ACCORD-092289

PATIENT
  Age: 65 Year
  Sex: Female
  Weight: 0 kg

DRUGS (7)
  1. XANAX [Concomitant]
     Active Substance: ALPRAZOLAM
  2. CARDIRENE [Concomitant]
     Active Substance: ASPIRIN DL-LYSINE
  3. LANSOPRAZOLE. [Concomitant]
     Active Substance: LANSOPRAZOLE
  4. DIBASE [Concomitant]
     Active Substance: CHOLECALCIFEROL
  5. ENTACT [Concomitant]
     Active Substance: ESCITALOPRAM OXALATE
  6. FOLINA [Concomitant]
     Active Substance: FOLIC ACID
  7. METHOTREXATE. [Suspect]
     Active Substance: METHOTREXATE
     Indication: RHEUMATOID ARTHRITIS
     Route: 048
     Dates: start: 20160422, end: 20180620

REACTIONS (1)
  - Bursitis infective [Recovering/Resolving]

NARRATIVE: CASE EVENT DATE: 20180620
